FAERS Safety Report 15722766 (Version 3)
Quarter: 2019Q1

REPORT INFORMATION
  Report Type: Report from Study
  Country: PL (occurrence: PL)
  Receive Date: 20181214
  Receipt Date: 20190201
  Transmission Date: 20190417
  Serious: Yes (Other)
  Sender: FDA-Public Use
  Company Number: PL-CHIESI USA, INC.-PL-2018CHI000561

PATIENT
  Age: 0 Day
  Sex: Male
  Weight: 1.83 kg

DRUGS (5)
  1. CUROSURF [Suspect]
     Active Substance: PORACTANT ALFA
     Indication: NEONATAL RESPIRATORY DISTRESS SYNDROME
     Dosage: 360 MG, SINGLE
     Route: 039
     Dates: start: 20181129, end: 20181129
  2. KETAMINE [Concomitant]
     Active Substance: KETAMINE
     Indication: SEDATION
     Dosage: 2 MG, QD
     Route: 042
     Dates: start: 20181129, end: 20181129
  3. GENTAMYCIN                         /00047101/ [Concomitant]
     Active Substance: GENTAMICIN
     Indication: NEONATAL INFECTION
     Dosage: 7 MG, QD
     Route: 042
     Dates: start: 20181129, end: 20181130
  4. AMPICILLIN                         /00000502/ [Concomitant]
     Active Substance: AMPICILLIN
     Indication: NEONATAL INFECTION
     Dosage: 180 MG, QD
     Route: 042
     Dates: start: 20181129, end: 20181130
  5. PEYONA [Concomitant]
     Indication: INFANTILE APNOEA
     Dosage: 36 MG, QD
     Route: 042
     Dates: start: 20181129, end: 20181217

REACTIONS (1)
  - Neonatal hypoxia [Recovered/Resolved]

NARRATIVE: CASE EVENT DATE: 20181129
